FAERS Safety Report 6993814-5 (Version None)
Quarter: 2010Q3

REPORT INFORMATION
  Report Type: 
  Country: None (occurrence: None)
  Receive Date: 20100917
  Receipt Date: 20091204
  Transmission Date: 20110219
  Serious: No
  Sender: FDA-Public Use
  Company Number: US-ASTRAZENECA-2009SE30515

PATIENT
  Age: 84 Year
  Sex: Female

DRUGS (2)
  1. SEROQUEL [Suspect]
     Indication: DEPRESSION
     Dosage: HALF A TABLET EVERY NIGHT
     Route: 048
  2. PRISTIQ [Concomitant]

REACTIONS (4)
  - AMNESIA [None]
  - DRUG INEFFECTIVE [None]
  - HYPERHIDROSIS [None]
  - LETHARGY [None]
